FAERS Safety Report 8921000 (Version 3)
Quarter: 2012Q4

REPORT INFORMATION
  Report Type: 
  Country: US (occurrence: US)
  Receive Date: 20121121
  Receipt Date: 20121218
  Transmission Date: 20130627
  Serious: Yes (Hospitalization)
  Sender: FDA-Public Use
  Company Number: US-ACTELION-A-NJ2012-74146

PATIENT
  Age: 56 Year
  Sex: Male

DRUGS (1)
  1. VELETRI [Suspect]
     Indication: PORTOPULMONARY HYPERTENSION
     Dosage: 30 ng/kg, per min
     Route: 041
     Dates: start: 20121012

REACTIONS (6)
  - Haemorrhoids [Unknown]
  - Pain [Unknown]
  - Haemorrhoidal haemorrhage [Unknown]
  - Abdominal pain upper [Unknown]
  - Pain in jaw [Unknown]
  - Rash [Unknown]
